FAERS Safety Report 9818503 (Version 1)
Quarter: 2014Q1

REPORT INFORMATION
  Report Type: Spontaneous
  Country: US (occurrence: US)
  Receive Date: 20140115
  Receipt Date: 20140115
  Transmission Date: 20141002
  Serious: No
  Sender: FDA-Public Use
  Company Number: US-009507513-1401USA002993

PATIENT
  Age: 20 Year
  Sex: Female

DRUGS (5)
  1. ISENTRESS [Suspect]
     Dosage: TOTAL DAILY DOSE 800.
     Route: 048
  2. EMTRICITABINE (+) TENOFOVIR DISOPROXIL FUMARATE [Suspect]
     Dosage: TOTAL DAILY DOSE 1.
     Route: 048
  3. LAMIVUDINE (+) ZIDOVUDINE [Suspect]
     Dosage: TOTAL DAILY DOSE 2.
     Route: 048
  4. ZIDOVUDINE [Suspect]
     Dosage: TOTAL DAILY DOSE 2.
     Route: 042
  5. ZIDOVUDINE [Suspect]
     Dosage: TOTAL SAILY DOSE 1.
     Route: 042

REACTIONS (1)
  - Exposure during pregnancy [Recovered/Resolved]
